FAERS Safety Report 23887091 (Version 3)
Quarter: 2024Q4

REPORT INFORMATION
  Report Type: Report from Study
  Country: ES (occurrence: ES)
  Receive Date: 20240523
  Receipt Date: 20241011
  Transmission Date: 20250115
  Serious: No
  Sender: SANDOZ
  Company Number: ES-SANDOZ-SDZ2023ES031395

PATIENT
  Age: 13 Year
  Sex: Male
  Weight: 39 kg

DRUGS (2)
  1. OMNITROPE [Suspect]
     Active Substance: SOMATROPIN
     Indication: Product used for unknown indication
     Dosage: 0.5 MG
     Route: 058
     Dates: start: 20230908
  2. OMNITROPE [Suspect]
     Active Substance: SOMATROPIN
     Indication: Product used for unknown indication
     Dosage: 0.5 MG
     Route: 058
     Dates: start: 20230908

REACTIONS (2)
  - Product dose omission issue [Unknown]
  - Device end of service [Unknown]

NARRATIVE: CASE EVENT DATE: 20230908
